FAERS Safety Report 10592268 (Version 1)
Quarter: 2014Q4

REPORT INFORMATION
  Report Type: Spontaneous
  Country: GR (occurrence: None)
  Receive Date: 20141117
  Receipt Date: 20141117
  Transmission Date: 20150529
  Serious: Yes (Death, Other)
  Sender: FDA-Public Use
  Company Number: ADR-2014-02125

PATIENT

DRUGS (1)
  1. BACLOFEN INTRATHECAL [Suspect]
     Active Substance: BACLOFEN
     Indication: MUSCLE SPASTICITY
     Dosage: 104MCG/DAY (MEAN DOSE)

REACTIONS (2)
  - Pneumonia aspiration [None]
  - Paralysis [None]

NARRATIVE: CASE EVENT DATE: 20140101
